FAERS Safety Report 9706580 (Version 1)
Quarter: 2013Q4

REPORT INFORMATION
  Report Type: Spontaneous
  Country: IE (occurrence: IE)
  Receive Date: 20131125
  Receipt Date: 20131125
  Transmission Date: 20140711
  Serious: Yes (Other)
  Sender: FDA-Public Use
  Company Number: IE-AMGEN-IRLSP2013081671

PATIENT
  Age: 71 Year
  Sex: Male

DRUGS (1)
  1. ARANESP [Suspect]
     Indication: PRODUCT USED FOR UNKNOWN INDICATION
     Dosage: 30 MUG, QWK
     Route: 058
     Dates: start: 20131108

REACTIONS (5)
  - Blood glucose abnormal [Unknown]
  - Blood pressure abnormal [Unknown]
  - Dysstasia [Unknown]
  - Haemoglobin abnormal [Unknown]
  - Fall [Unknown]
